FAERS Safety Report 8301747-7 (Version None)
Quarter: 2012Q2

REPORT INFORMATION
  Report Type: 
  Country: None (occurrence: None)
  Receive Date: 20120420
  Receipt Date: 20120411
  Transmission Date: 20120825
  Serious: Yes (Death, Hospitalization)
  Sender: FDA-Public Use
  Company Number: US-ACTELION-A-US2012-63035

PATIENT

DRUGS (3)
  1. TRACLEER [Suspect]
     Indication: PULMONARY ARTERIAL HYPERTENSION
     Dosage: UNK
     Route: 048
     Dates: start: 20021219
  2. ADCIRCA [Concomitant]
  3. COUMADIN [Concomitant]

REACTIONS (3)
  - FLUID OVERLOAD [None]
  - DEATH [None]
  - DIURETIC THERAPY [None]
